FAERS Safety Report 15593324 (Version 1)
Quarter: 2018Q4

REPORT INFORMATION
  Report Type: Spontaneous
  Country: US (occurrence: US)
  Receive Date: 20181102
  Receipt Date: 20181102
  Transmission Date: 20190205
  Serious: Yes (Hospitalization)
  Sender: FDA-Public Use
  Company Number: None

PATIENT
  Age: 55 Year
  Sex: Male
  Weight: 63.84 kg

DRUGS (1)
  1. CARVEDILOL. [Suspect]
     Active Substance: CARVEDILOL
     Indication: HYPERTENSION
     Dosage: ?          OTHER DOSE:6.25 MG;?
     Route: 048
     Dates: start: 20180726, end: 20180914

REACTIONS (5)
  - Hypotension [None]
  - Hypoxia [None]
  - Chest pain [None]
  - Cardio-respiratory arrest [None]
  - Bradycardia [None]

NARRATIVE: CASE EVENT DATE: 20180914
